FAERS Safety Report 13887965 (Version 1)
Quarter: 2017Q3

REPORT INFORMATION
  Report Type: Spontaneous
  Country: US (occurrence: US)
  Receive Date: 20170816
  Receipt Date: 20170816
  Transmission Date: 20171127
  Serious: Yes (Disabling)
  Sender: FDA-Public Use
  Company Number: None

PATIENT
  Sex: Male
  Weight: 10.35 kg

DRUGS (1)
  1. VITAMIN D3 [Suspect]
     Active Substance: CHOLECALCIFEROL
     Indication: DRUG THERAPY
     Dosage: ?          QUANTITY:1.0 DROP(S);?
     Route: 048

REACTIONS (4)
  - Influenza like illness [None]
  - Diarrhoea [None]
  - Agitation [None]
  - Product quality issue [None]

NARRATIVE: CASE EVENT DATE: 20170319
